FAERS Safety Report 25866386 (Version 1)
Quarter: 2025Q3

REPORT INFORMATION
  Report Type: Report from Study
  Country: JP (occurrence: JP)
  Receive Date: 20250930
  Receipt Date: 20250930
  Transmission Date: 20251020
  Serious: Yes (Hospitalization)
  Sender: SERVIER
  Company Number: JP-SERVIER-S25014083

PATIENT

DRUGS (9)
  1. PEGASPARGASE [Suspect]
     Active Substance: PEGASPARGASE
     Indication: B-cell type acute leukaemia
     Route: 065
     Dates: start: 20240906, end: 20240906
  2. ONCOVIN [Suspect]
     Active Substance: VINCRISTINE SULFATE
     Indication: B-cell type acute leukaemia
     Route: 065
     Dates: start: 2024
  3. IDAMYCIN [Suspect]
     Active Substance: IDARUBICIN HYDROCHLORIDE
     Indication: B-cell type acute leukaemia
     Route: 065
     Dates: start: 2024
  4. DAUNORUBICIN [Suspect]
     Active Substance: DAUNORUBICIN
     Indication: Product used for unknown indication
     Route: 065
  5. DECADRON [Concomitant]
     Active Substance: DEXAMETHASONE
     Indication: B-cell type acute leukaemia
     Route: 065
     Dates: start: 2024
  6. FLUCONAZOLE [Concomitant]
     Active Substance: FLUCONAZOLE
     Indication: Product used for unknown indication
     Route: 048
     Dates: start: 20240906
  7. SULFAMETHOXAZOLE\TRIMETHOPRIM [Concomitant]
     Active Substance: SULFAMETHOXAZOLE\TRIMETHOPRIM
     Indication: Product used for unknown indication
     Route: 048
     Dates: start: 20240906
  8. ACYCLOVIR [Concomitant]
     Active Substance: ACYCLOVIR
     Indication: Product used for unknown indication
     Route: 048
     Dates: start: 20240906
  9. URSODIOL [Concomitant]
     Active Substance: URSODIOL
     Indication: Product used for unknown indication
     Route: 048
     Dates: start: 20240906

REACTIONS (7)
  - Neutropenia [Recovered/Resolved]
  - Thrombocytopenia [Recovered/Resolved]
  - Anaemia [Recovered/Resolved]
  - Leukopenia [Recovered/Resolved]
  - Antithrombin III deficiency [Recovered/Resolved]
  - Hepatic function abnormal [Recovered/Resolved]
  - Underdose [Recovered/Resolved]

NARRATIVE: CASE EVENT DATE: 20240906
